FAERS Safety Report 16196133 (Version 2)
Quarter: 2019Q2

REPORT INFORMATION
  Report Type: Spontaneous
  Country: TR (occurrence: TR)
  Receive Date: 20190415
  Receipt Date: 20190423
  Transmission Date: 20190711
  Serious: Yes (Death, Hospitalization, Other)
  Sender: FDA-Public Use
  Company Number: TR-ASTELLAS-2019US015823

PATIENT
  Age: 66 Year
  Sex: Female

DRUGS (1)
  1. AMPHOTERICIN B, LIPOSOME [Suspect]
     Active Substance: AMPHOTERICIN B
     Indication: SINUSITIS ASPERGILLUS
     Route: 065

REACTIONS (1)
  - Drug ineffective [Fatal]
